FAERS Safety Report 17231776 (Version 9)
Quarter: 2020Q2

REPORT INFORMATION
  Report Type: Spontaneous
  Country: US (occurrence: US)
  Receive Date: 20200103
  Receipt Date: 20200405
  Transmission Date: 20200713
  Serious: Yes (Other)
  Sender: FDA-Public Use
  Company Number: NVSC2020US000661

PATIENT
  Age: 81 Year
  Sex: Female

DRUGS (10)
  1. BEOVU [Suspect]
     Active Substance: BROLUCIZUMAB-DBLL
     Indication: NEOVASCULAR AGE-RELATED MACULAR DEGENERATION
     Dosage: 6 MG (FORMULATION: INJECTION)
     Route: 065
     Dates: start: 20191024, end: 20191024
  2. ALDACTONE [Concomitant]
     Active Substance: SPIRONOLACTONE
     Indication: HYPERTENSION
     Dosage: 25 MG, UNKNOWN
     Route: 065
  3. PREDNISONE. [Concomitant]
     Active Substance: PREDNISONE
     Dosage: 20 MG (UNTIL NEXT APPT)
     Route: 048
     Dates: end: 20200109
  4. DUREZOL [Concomitant]
     Active Substance: DIFLUPREDNATE
     Indication: PRODUCT USED FOR UNKNOWN INDICATION
     Dosage: UNK, Q2H
     Route: 065
  5. LOSARTAN. [Concomitant]
     Active Substance: LOSARTAN
     Indication: HYPERTENSION
     Dosage: UNK
     Route: 065
  6. PREDNISONE. [Concomitant]
     Active Substance: PREDNISONE
     Indication: PRODUCT USED FOR UNKNOWN INDICATION
     Dosage: 60 MG, QD (FOR 5 DAY)
     Route: 048
     Dates: start: 20191220
  7. PREDNISONE. [Concomitant]
     Active Substance: PREDNISONE
     Dosage: 40 MG (FOR 5 DAYS)
     Route: 048
  8. PREDNISONE. [Concomitant]
     Active Substance: PREDNISONE
     Dosage: 10 MG(5 DAYS)
     Route: 048
  9. EYLEA [Concomitant]
     Active Substance: AFLIBERCEPT
     Indication: PRODUCT USED FOR UNKNOWN INDICATION
     Dosage: UNK
     Route: 065
  10. BEOVU [Suspect]
     Active Substance: BROLUCIZUMAB-DBLL
     Dosage: 6 MG
     Route: 065

REACTIONS (19)
  - Visual acuity tests [Recovered/Resolved]
  - Retinal haemorrhage [Recovering/Resolving]
  - Vasculitis [Not Recovered/Not Resolved]
  - Retinal vasculitis [Unknown]
  - Papilloedema [Recovering/Resolving]
  - Uveitis [Unknown]
  - Visual field defect [Unknown]
  - Retinal vascular occlusion [Unknown]
  - Temporal arteritis [Not Recovered/Not Resolved]
  - Inflammation [Not Recovered/Not Resolved]
  - Retinal disorder [Recovering/Resolving]
  - Vitritis [Recovered/Resolved]
  - Vitreous floaters [Recovered/Resolved]
  - Vision blurred [Unknown]
  - Nervous system disorder [Not Recovered/Not Resolved]
  - Blindness unilateral [Unknown]
  - Venous haemorrhage [Unknown]
  - Retinal artery occlusion [Not Recovered/Not Resolved]
  - Eye inflammation [Not Recovered/Not Resolved]

NARRATIVE: CASE EVENT DATE: 20191024
